FAERS Safety Report 5112782-4 (Version None)
Quarter: 2006Q3

REPORT INFORMATION
  Report Type: 
  Country: None (occurrence: None)
  Receive Date: 20060802
  Receipt Date: 20060419
  Transmission Date: 20061208
  Serious: No
  Sender: FDA-Public Use
  Company Number: 200613938US

PATIENT
  Age: 78 Year
  Sex: Female

DRUGS (5)
  1. KETEK [Suspect]
     Indication: SINUSITIS
     Dosage: PO
     Route: 048
  2. TRAMADOL HCL [Suspect]
     Indication: PAIN
  3. CAFFEINE [Concomitant]
  4. BUTALBITAL [Concomitant]
  5. PARACETAMOL (BUTALBITAL, ACETAMINOPHEN + CAFFEINE) [Concomitant]

REACTIONS (2)
  - LETHARGY [None]
  - SOMNOLENCE [None]
